FAERS Safety Report 14026308 (Version 1)
Quarter: 2017Q3

REPORT INFORMATION
  Report Type: Spontaneous
  Country: US (occurrence: US)
  Receive Date: 20170929
  Receipt Date: 20170929
  Transmission Date: 20171128
  Serious: No
  Sender: FDA-Public Use
  Company Number: US-B.I. PHARMACEUTICALS,INC./RIDGEFIELD-2017-BI-052332

PATIENT
  Age: 86 Year
  Sex: Male

DRUGS (7)
  1. PRADAXA [Suspect]
     Active Substance: DABIGATRAN ETEXILATE MESYLATE
     Indication: CEREBROVASCULAR ACCIDENT PROPHYLAXIS
     Dosage: ONE CAPSULE TWICE A DAY;  FORM STRENGTH: 150 MG; FORMULATION: CAPSULE? ADMINISTRATION CORRECT? YES
     Route: 048
     Dates: start: 2014
  2. FUROSEMIDE. [Concomitant]
     Active Substance: FUROSEMIDE
     Indication: DEHYDRATION
     Dosage: ONCE DAILY;  FORM STRENGTH: 20 MG; FORMULATION: TABLET
     Route: 048
  3. VESICOR [Concomitant]
     Indication: PROPHYLAXIS URINARY TRACT INFECTION
     Dosage: ONE TABLET ONCE A DAY;  FORM STRENGTH: 10 MG
     Route: 048
  4. VESICOR [Concomitant]
     Indication: FUNCTIONAL GASTROINTESTINAL DISORDER
  5. VALSARTAN HCTZ [Concomitant]
     Active Substance: HYDROCHLOROTHIAZIDE\VALSARTAN
     Indication: PRODUCT USED FOR UNKNOWN INDICATION
     Dosage: ONE TABLET ONCE A DAY;  FORM STRENGTH, UNIT DOSE AND DAILY DOSE: 320/12.5 MG; FORMULATION: TABLET
     Route: 048
  6. ALIVE [Concomitant]
     Indication: PRODUCT USED FOR UNKNOWN INDICATION
     Dosage: ONE TABLET ONCE A DAY;
     Route: 065
  7. ATENOLOL. [Concomitant]
     Active Substance: ATENOLOL
     Indication: ARRHYTHMIA
     Dosage: ONE TABLET ONCE A DAY;  FORM STRENGTH: 25 MG; FORMULATION: TABLET
     Route: 048

REACTIONS (1)
  - Urinary tract infection [Not Recovered/Not Resolved]

NARRATIVE: CASE EVENT DATE: 20170921
